FAERS Safety Report 4726149-1 (Version None)
Quarter: 2005Q3

REPORT INFORMATION
  Report Type: 
  Country: None (occurrence: None)
  Receive Date: 20050725
  Receipt Date: 20050725
  Transmission Date: 20060218
  Serious: Yes (Death, Life-Threatening, Hospitalization)
  Sender: FDA-Public Use
  Company Number: None

PATIENT
  Age: 16 Year
  Sex: Female
  Weight: 57 kg

DRUGS (1)
  1. ETANERCEPT [Suspect]
     Indication: PROPHYLAXIS AGAINST TRANSPLANT REJECTION
     Dosage: 25 MG SQ 2X/WEEK
     Route: 058

REACTIONS (5)
  - BLOOD ALBUMIN DECREASED [None]
  - FLUID OVERLOAD [None]
  - GRAFT VERSUS HOST DISEASE [None]
  - POST PROCEDURAL COMPLICATION [None]
  - STEVENS-JOHNSON SYNDROME [None]
